FAERS Safety Report 15135874 (Version 1)
Quarter: 2018Q3

REPORT INFORMATION
  Report Type: Spontaneous
  Country: FR (occurrence: FR)
  Receive Date: 20180712
  Receipt Date: 20180712
  Transmission Date: 20181010
  Serious: Yes (Death, Other)
  Sender: FDA-Public Use
  Company Number: FR-MYLANLABS-2018M1049540

PATIENT
  Age: 63 Year
  Sex: Female

DRUGS (22)
  1. CYCLOPHOSPHAMIDE. [Suspect]
     Active Substance: CYCLOPHOSPHAMIDE
     Indication: RENAL AMYLOIDOSIS
     Dosage: ON DAYS 1,8,15
     Route: 048
  2. DEXAMETHASONE. [Suspect]
     Active Substance: DEXAMETHASONE
     Indication: PARAPROTEINAEMIA
     Dosage: UNK
     Route: 065
  3. DEXAMETHASONE. [Suspect]
     Active Substance: DEXAMETHASONE
     Dosage: UNK
     Route: 065
  4. CYCLOPHOSPHAMIDE. [Suspect]
     Active Substance: CYCLOPHOSPHAMIDE
     Dosage: ON DAYS 1,8,15
     Route: 048
  5. DEXAMETHASONE. [Suspect]
     Active Substance: DEXAMETHASONE
     Indication: RENAL AMYLOIDOSIS
     Dosage: 20 MG, QW
     Route: 048
     Dates: start: 201308
  6. DEXAMETHASONE. [Suspect]
     Active Substance: DEXAMETHASONE
     Dosage: 20 MG, QW
     Route: 048
     Dates: start: 201308
  7. BORTEZOMIB. [Suspect]
     Active Substance: BORTEZOMIB
     Indication: GASTROINTESTINAL AMYLOIDOSIS
     Dosage: ON DAYS 1, 8, 15 AND 21, OF A 28?DAY CYCLE
     Route: 058
  8. DEXAMETHASONE. [Suspect]
     Active Substance: DEXAMETHASONE
     Dosage: UNK
     Route: 065
  9. CYCLOPHOSPHAMIDE. [Suspect]
     Active Substance: CYCLOPHOSPHAMIDE
     Dosage: DOSAGE FORM: UNSPECIFIED, ON DAY 1, 8 AND 15
     Route: 048
  10. DEXAMETHASONE. [Suspect]
     Active Substance: DEXAMETHASONE
     Dosage: 20 MG, QW
     Route: 048
     Dates: start: 201308
  11. BORTEZOMIB. [Suspect]
     Active Substance: BORTEZOMIB
     Dosage: ON DAYS 1, 8, 15 AND 21, OF A 28?DAY CYCLE
     Route: 058
  12. BORTEZOMIB. [Suspect]
     Active Substance: BORTEZOMIB
     Dosage: ON DAYS 1, 8, 15 AND 21, OF A 28?DAY CYCLE
     Route: 058
  13. LENALIDOMIDE [Suspect]
     Active Substance: LENALIDOMIDE
     Indication: KAPOSI^S SARCOMA
     Dosage: 5 MG, QW
     Route: 065
     Dates: start: 201401
  14. LENALIDOMIDE [Suspect]
     Active Substance: LENALIDOMIDE
     Indication: PARAPROTEINAEMIA
     Route: 065
     Dates: start: 201401
  15. BORTEZOMIB. [Suspect]
     Active Substance: BORTEZOMIB
     Indication: RENAL AMYLOIDOSIS
     Dosage: ON DAYS 1, 8, 15 AND 21, OF A 28?DAY CYCLE
     Route: 058
  16. DEXAMETHASONE. [Suspect]
     Active Substance: DEXAMETHASONE
     Indication: GASTROINTESTINAL AMYLOIDOSIS
     Dosage: 20 MG, QW
     Route: 048
  17. CYCLOPHOSPHAMIDE. [Suspect]
     Active Substance: CYCLOPHOSPHAMIDE
     Indication: GASTROINTESTINAL AMYLOIDOSIS
     Dosage: ON DAYS 1,8,15
     Route: 048
  18. BORTEZOMIB. [Suspect]
     Active Substance: BORTEZOMIB
     Indication: GASTROINTESTINAL AMYLOIDOSIS
  19. INTERFERON ALFA NOS [Concomitant]
     Active Substance: INTERFERON ALFA-2A OR INTERFERON ALFA-2B
     Indication: PRODUCT USED FOR UNKNOWN INDICATION
     Dosage: PEGYLATED
  20. DEXAMETHASONE. [Suspect]
     Active Substance: DEXAMETHASONE
     Dosage: 20 MG, QW
     Route: 048
  21. DEXAMETHASONE. [Suspect]
     Active Substance: DEXAMETHASONE
     Dosage: 20 MG, QW
     Route: 048
  22. RIBAVIRIN. [Concomitant]
     Active Substance: RIBAVIRIN
     Indication: PRODUCT USED FOR UNKNOWN INDICATION

REACTIONS (9)
  - Kaposi^s sarcoma [Fatal]
  - Off label use [Unknown]
  - Septic shock [Fatal]
  - Infection reactivation [Fatal]
  - Papule [Fatal]
  - Enterococcal bacteraemia [Fatal]
  - Skin lesion [Fatal]
  - Human herpesvirus 8 infection [Fatal]
  - Renal impairment [Fatal]

NARRATIVE: CASE EVENT DATE: 201310
